FAERS Safety Report 19012755 (Version 2)
Quarter: 2021Q1

REPORT INFORMATION
  Report Type: Spontaneous
  Country: TW (occurrence: TW)
  Receive Date: 20210316
  Receipt Date: 20210325
  Transmission Date: 20210420
  Serious: Yes (Death, Other)
  Sender: FDA-Public Use
  Company Number: TW-ROCHE-2789394

PATIENT
  Age: 80 Year
  Sex: Male

DRUGS (1)
  1. ALECENSA [Suspect]
     Active Substance: ALECTINIB HYDROCHLORIDE
     Indication: NON-SMALL CELL LUNG CANCER
     Route: 065
     Dates: start: 20210209, end: 20210223

REACTIONS (3)
  - Hepatic enzyme increased [Fatal]
  - Renal failure [Fatal]
  - Shock [Unknown]

NARRATIVE: CASE EVENT DATE: 20210223
